FAERS Safety Report 9351486 (Version 1)
Quarter: 2013Q2

REPORT INFORMATION
  Report Type: Spontaneous
  Country: FR (occurrence: FR)
  Receive Date: 20130617
  Receipt Date: 20130617
  Transmission Date: 20140414
  Serious: Yes (Hospitalization, Other)
  Sender: FDA-Public Use
  Company Number: FR-009507513-1306FRA005820

PATIENT
  Age: 35 Year
  Sex: Female

DRUGS (1)
  1. NEXPLANON [Suspect]
     Indication: PRODUCT USED FOR UNKNOWN INDICATION
     Dosage: UNK
     Route: 059
     Dates: start: 201206, end: 2013

REACTIONS (1)
  - Pulmonary embolism [Recovering/Resolving]
